FAERS Safety Report 19123092 (Version 3)
Quarter: 2021Q3

REPORT INFORMATION
  Report Type: Spontaneous
  Country: US (occurrence: US)
  Receive Date: 20210412
  Receipt Date: 20210810
  Transmission Date: 20211014
  Serious: No
  Sender: FDA-Public Use
  Company Number: US-PFIZER INC-2021293506

PATIENT
  Age: 70 Year
  Sex: Female

DRUGS (2)
  1. XELJANZ XR [Suspect]
     Active Substance: TOFACITINIB CITRATE
     Dosage: 11 MG
     Dates: start: 202102
  2. XELJANZ XR [Suspect]
     Active Substance: TOFACITINIB CITRATE
     Dosage: 11 MG
     Dates: start: 20210701

REACTIONS (10)
  - Bone disorder [Unknown]
  - Depressed mood [Unknown]
  - Discomfort [Unknown]
  - Abdominal discomfort [Unknown]
  - Nausea [Unknown]
  - Pain [Unknown]
  - Condition aggravated [Unknown]
  - Malaise [Unknown]
  - Peripheral swelling [Unknown]
  - Arthritis [Unknown]
